FAERS Safety Report 4270672-3 (Version None)
Quarter: 2004Q1

REPORT INFORMATION
  Report Type: 
  Country: None (occurrence: None)
  Receive Date: 20040114
  Receipt Date: 20040108
  Transmission Date: 20041129
  Serious: Yes (Hospitalization)
  Sender: FDA-Public Use
  Company Number: WAES 0401CHE00005

PATIENT
  Sex: Female

DRUGS (3)
  1. HYDROCHLOROTHIAZIDE AND LOSARTAN POTASSIUM [Suspect]
     Route: 048
  2. COZAAR [Suspect]
     Route: 048
  3. COZAAR [Suspect]
     Route: 048

REACTIONS (1)
  - CARDIAC VALVE DISEASE [None]
